FAERS Safety Report 24631255 (Version 1)
Quarter: 2024Q4

REPORT INFORMATION
  Report Type: Spontaneous
  Country: US (occurrence: US)
  Receive Date: 20241118
  Receipt Date: 20241118
  Transmission Date: 20250114
  Serious: Yes (Hospitalization)
  Sender: BEXIMCO PHARMACEUTICALS
  Company Number: US-BEXIMCO-2024BEX00048

PATIENT
  Age: 3 Month
  Sex: Male

DRUGS (5)
  1. FLECAINIDE ACETATE [Suspect]
     Active Substance: FLECAINIDE ACETATE
     Dosage: 80 MG/M2, 1X/DAY
  2. FLECAINIDE ACETATE [Suspect]
     Active Substance: FLECAINIDE ACETATE
     Dosage: 60 MG/M2, 1X/DAY
  3. AMIODARONE [Suspect]
     Active Substance: AMIODARONE
     Dosage: 2 MG/KG, 1X/DAY
  4. AMIODARONE [Suspect]
     Active Substance: AMIODARONE
     Dosage: 2 MG/KG
  5. AMIODARONE [Suspect]
     Active Substance: AMIODARONE
     Dosage: 5 MG/KG

REACTIONS (4)
  - Respiratory distress [Recovered/Resolved]
  - Metabolic acidosis [Recovered/Resolved]
  - Toxicity to various agents [Recovered/Resolved]
  - Drug interaction [Recovered/Resolved]
